FAERS Safety Report 20972963 (Version 1)
Quarter: 2022Q2

REPORT INFORMATION
  Report Type: Spontaneous
  Country: CN (occurrence: CN)
  Receive Date: 20220617
  Receipt Date: 20220617
  Transmission Date: 20220721
  Serious: Yes (Other)
  Sender: FDA-Public Use
  Company Number: CN-BEH-2022146304

PATIENT
  Age: 29 Year
  Sex: Female

DRUGS (15)
  1. ALBUMIN HUMAN [Suspect]
     Active Substance: ALBUMIN HUMAN
     Indication: Hypoalbuminaemia
     Route: 042
  2. ASPIRIN [Suspect]
     Active Substance: ASPIRIN
     Dosage: 25 MILLIGRAM, TID
     Route: 048
  3. HYDROXYCHLOROQUINE [Suspect]
     Active Substance: HYDROXYCHLOROQUINE
     Dosage: 100 MILLIGRAM, TID
     Route: 065
  4. CYCLOSPORINE [Suspect]
     Active Substance: CYCLOSPORINE
     Dosage: 50 MILLIGRAM, TID
     Route: 065
  5. PREDNISONE [Suspect]
     Active Substance: PREDNISONE
     Dosage: 7.5 MILLIGRAM, OD
     Route: 065
  6. PREDNISONE [Suspect]
     Active Substance: PREDNISONE
     Dosage: 10 MILLIGRAM, TID
     Route: 048
  7. PREDNISONE [Suspect]
     Active Substance: PREDNISONE
     Dosage: 20 UNK
     Route: 048
  8. DYDROGESTERONE [Suspect]
     Active Substance: DYDROGESTERONE
     Dosage: 10 MILLIGRAM, TID
  9. CEFOPERAZONE [Suspect]
     Active Substance: CEFOPERAZONE
     Route: 065
  10. SULBACTAM SODIUM [Suspect]
     Active Substance: SULBACTAM SODIUM
     Dosage: 2 GRAM
     Route: 065
  11. HUMAN IMMUNOGLOBULIN G [Suspect]
     Active Substance: HUMAN IMMUNOGLOBULIN G
     Dosage: 20 GRAM, QD
     Route: 042
  12. AZITHROMYCIN [Suspect]
     Active Substance: AZITHROMYCIN
     Indication: Infection prophylaxis
     Dosage: 0.5 GRAM, QD
     Route: 065
  13. ENOXAPARIN [Suspect]
     Active Substance: ENOXAPARIN
     Indication: Coagulopathy
     Dosage: 4000 INTERNATIONAL UNIT
     Route: 058
  14. ACETAMINOPHEN [Suspect]
     Active Substance: ACETAMINOPHEN
     Route: 065
  15. METHYLPREDNISOLONE [Suspect]
     Active Substance: METHYLPREDNISOLONE
     Dosage: 30 MILLIGRAM, BID
     Route: 042

REACTIONS (2)
  - Stillbirth [Not Recovered/Not Resolved]
  - Maternal exposure during pregnancy [Not Recovered/Not Resolved]
